FAERS Safety Report 15615594 (Version 2)
Quarter: 2018Q4

REPORT INFORMATION
  Report Type: Report from Study
  Country: US (occurrence: US)
  Receive Date: 20181114
  Receipt Date: 20181220
  Transmission Date: 20190205
  Serious: Yes (Hospitalization, Other)
  Sender: FDA-Public Use
  Company Number: US-GILEAD-2018-0368558

PATIENT
  Age: 72 Year
  Sex: Female

DRUGS (16)
  1. METFORMIN [Concomitant]
     Active Substance: METFORMIN HYDROCHLORIDE
  2. LEVOTHYROXINE. [Concomitant]
     Active Substance: LEVOTHYROXINE
  3. AMBRISENTAN [Suspect]
     Active Substance: AMBRISENTAN
     Indication: PULMONARY ARTERIAL HYPERTENSION
     Dosage: 10 MG, QD
     Route: 065
     Dates: start: 20180816
  4. CELECOXIB. [Concomitant]
     Active Substance: CELECOXIB
  5. MYCOPHENOLATE [Concomitant]
     Active Substance: MYCOPHENOLIC ACID
  6. ROPINIROLE. [Concomitant]
     Active Substance: ROPINIROLE
  7. DULOXETINE. [Concomitant]
     Active Substance: DULOXETINE
  8. SIMVASTATIN. [Concomitant]
     Active Substance: SIMVASTATIN
  9. HYDROCHLOROTH [Concomitant]
     Active Substance: HYDROCHLOROTHIAZIDE
  10. ADCIRCA [Concomitant]
     Active Substance: TADALAFIL
  11. LISINOPRIL. [Concomitant]
     Active Substance: LISINOPRIL
  12. METHYLPRED [Concomitant]
     Active Substance: METHYLPREDNISOLONE
  13. VITAMIN D                          /00107901/ [Concomitant]
     Active Substance: ERGOCALCIFEROL
  14. METHYPRED [Concomitant]
  15. TOLTERODINE [Concomitant]
     Active Substance: TOLTERODINE
  16. LEVOTHYROXIN [Concomitant]
     Active Substance: LEVOTHYROXINE

REACTIONS (2)
  - Dyspnoea [Recovered/Resolved]
  - Cardiac failure congestive [Unknown]

NARRATIVE: CASE EVENT DATE: 20181015
